FAERS Safety Report 7043940-X (Version None)
Quarter: 2010Q4

REPORT INFORMATION
  Report Type: 
  Country: None (occurrence: None)
  Receive Date: 20101008
  Receipt Date: 20101008
  Transmission Date: 20110411
  Serious: Yes (Life-Threatening, Other)
  Sender: FDA-Public Use
  Company Number: None

PATIENT
  Age: 69 Year
  Sex: Male
  Weight: 82.5547 kg

DRUGS (2)
  1. HALOPERIDOL [Suspect]
     Indication: DELIRIUM
     Dosage: 1MG 3X DAILY PO
     Route: 048
     Dates: start: 20100910, end: 20100928
  2. HALOPERIDOL [Suspect]
     Dates: start: 20100220, end: 20100920

REACTIONS (6)
  - BALANCE DISORDER [None]
  - CELLULITIS [None]
  - INCOHERENT [None]
  - PERIPHERAL VASCULAR DISORDER [None]
  - SKIN DISCOLOURATION [None]
  - SOMNOLENCE [None]
